FAERS Safety Report 8224284-7 (Version None)
Quarter: 2012Q1

REPORT INFORMATION
  Report Type: 
  Country: None (occurrence: None)
  Receive Date: 20120321
  Receipt Date: 20120313
  Transmission Date: 20120608
  Serious: Yes (Hospitalization)
  Sender: FDA-Public Use
  Company Number: JP-ASTELLAS-2012US001081

PATIENT
  Sex: Male
  Weight: 71 kg

DRUGS (10)
  1. LANSOPRAZOLE [Concomitant]
     Indication: PRODUCT USED FOR UNKNOWN INDICATION
     Dosage: 15 MG, UID/QD
     Route: 048
  2. MAGNESIUM SULFATE [Concomitant]
     Indication: PRODUCT USED FOR UNKNOWN INDICATION
     Dosage: 990 MG, UID/QD
     Route: 048
  3. GEMCITABINE HYDROCHLORIDE [Suspect]
     Dosage: 1000 MG/M2, WEEKLY
     Route: 041
     Dates: start: 20111128, end: 20111212
  4. CELECOXIB [Concomitant]
     Indication: PRODUCT USED FOR UNKNOWN INDICATION
     Dosage: 200 MG, UID/QD
     Route: 048
  5. TRAMADOL HYDROCHLORIDE [Concomitant]
     Indication: PRODUCT USED FOR UNKNOWN INDICATION
     Dosage: 75 MG, UID/QD
     Route: 048
  6. CIFROQUINON [Concomitant]
     Indication: PRODUCT USED FOR UNKNOWN INDICATION
     Dosage: 1200 MG, UID/QD
     Route: 048
     Dates: start: 20111219, end: 20111226
  7. ERLOTINIB HYDROCHLORIDE [Suspect]
     Indication: ADENOCARCINOMA PANCREAS
     Dosage: 100 MG, UID/QD
     Route: 048
     Dates: start: 20111031, end: 20111226
  8. DIOVAN [Concomitant]
     Indication: PRODUCT USED FOR UNKNOWN INDICATION
     Dosage: 40 MG, UID/QD
     Route: 048
  9. GEMCITABINE HYDROCHLORIDE [Suspect]
     Indication: ADENOCARCINOMA PANCREAS
     Dosage: 1000 MG/M2, WEEKLY
     Route: 041
     Dates: start: 20111031, end: 20111107
  10. WARFARIN SODIUM [Concomitant]
     Indication: PRODUCT USED FOR UNKNOWN INDICATION
     Dosage: 3-3.5 MG, UID/QD
     Route: 048

REACTIONS (5)
  - INTERSTITIAL LUNG DISEASE [None]
  - XEROSIS [None]
  - PARONYCHIA [None]
  - DECREASED APPETITE [None]
  - VOMITING [None]
